FAERS Safety Report 13390975 (Version 1)
Quarter: 2017Q1

REPORT INFORMATION
  Report Type: Spontaneous
  Country: US (occurrence: US)
  Receive Date: 20170331
  Receipt Date: 20170331
  Transmission Date: 20170429
  Serious: Yes (Hospitalization)
  Sender: FDA-Public Use
  Company Number: None

PATIENT
  Age: 86 Year
  Sex: Female
  Weight: 68 kg

DRUGS (1)
  1. TRADJENTA [Suspect]
     Active Substance: LINAGLIPTIN
     Indication: TYPE 2 DIABETES MELLITUS
     Route: 048
     Dates: start: 20170313, end: 20170320

REACTIONS (5)
  - Gait disturbance [None]
  - Headache [None]
  - Pain in extremity [None]
  - Asthenia [None]
  - Arthralgia [None]

NARRATIVE: CASE EVENT DATE: 20170320
